FAERS Safety Report 8709374 (Version 5)
Quarter: 2012Q4

REPORT INFORMATION
  Report Type: 
  Country: US (occurrence: US)
  Receive Date: 20120806
  Receipt Date: 20120926
  Transmission Date: 20130627
  Serious: No
  Sender: FDA-Public Use
  Company Number: US-009507513-2012SP035225

PATIENT
  Age: 61 Year
  Sex: Female

DRUGS (11)
  1. MIRALAX [Suspect]
     Indication: CONSTIPATION
     Dosage: 17 g, qd
     Route: 048
     Dates: start: 20120527, end: 20120531
  2. MIRALAX [Suspect]
     Indication: MEDICAL OBSERVATION
  3. EFFEXOR [Concomitant]
     Indication: DEPRESSION
     Dosage: UNK, Unknown
  4. EFFEXOR [Concomitant]
     Indication: FIBROMYALGIA
  5. ELAVIL (AMITRIPTYLINE HYDROCHLORIDE) [Concomitant]
     Indication: DEPRESSION
     Dosage: UNK, Unknown
  6. ELAVIL (AMITRIPTYLINE HYDROCHLORIDE) [Concomitant]
     Indication: FIBROMYALGIA
  7. VITAMIN D (UNSPECIFIED) [Concomitant]
     Indication: PRODUCT USED FOR UNKNOWN INDICATION
     Dosage: UNK, Unknown
  8. ASCORBIC ACID [Concomitant]
     Indication: PRODUCT USED FOR UNKNOWN INDICATION
     Dosage: UNK, Unknown
  9. CALCIUM (UNSPECIFIED) (+) MAGNESIUM (UNSPECIFIED) [Concomitant]
     Indication: PRODUCT USED FOR UNKNOWN INDICATION
     Dosage: UNK, Unknown
  10. ALIGN [Concomitant]
     Indication: PRODUCT USED FOR UNKNOWN INDICATION
     Dosage: UNK, Unknown
  11. METAMUCIL [Concomitant]
     Indication: PRODUCT USED FOR UNKNOWN INDICATION
     Dosage: UNK, Unknown

REACTIONS (4)
  - Dysgeusia [Recovered/Resolved]
  - Diarrhoea [Recovered/Resolved]
  - Flatulence [Recovered/Resolved]
  - Frequent bowel movements [Recovered/Resolved]
